FAERS Safety Report 25937208 (Version 1)
Quarter: 2025Q4

REPORT INFORMATION
  Report Type: Spontaneous
  Country: EU (occurrence: EU)
  Receive Date: 20251017
  Receipt Date: 20251017
  Transmission Date: 20260119
  Serious: Yes (Life-Threatening, Hospitalization, Other)
  Sender: MERCK SHARP & DOHME LLC
  Company Number: None

PATIENT
  Age: 79 Year
  Sex: Female
  Weight: 61 kg

DRUGS (9)
  1. KEYTRUDA [Suspect]
     Active Substance: PEMBROLIZUMAB
     Indication: Ameloblastic carcinoma
     Dosage: FLAT DOSE 200 MG EVERY 21 DAYS FOR A TOTAL OF 21 CYCLES
     Route: 042
     Dates: start: 20240521, end: 20250909
  2. VALACYCLOVIR HYDROCHLORIDE [Concomitant]
     Active Substance: VALACYCLOVIR HYDROCHLORIDE
     Indication: Herpes zoster
     Dosage: ONCE A DAY
  3. OMEPRAZOLE CAPS 20MG [Concomitant]
     Dosage: 1-0-0 ON AN EMPTY STOMACH
  4. EUTHYROX TAB 50MCG [Concomitant]
     Dosage: 1-0-0, ON AN EMPTY STOMACH
  5. NIMESIL 100MG [Concomitant]
     Dosage: 1/2-0-0 IF IN PAIN
     Route: 048
  6. MAGNOSOLV SOL 365MG [Concomitant]
     Dosage: ONCE A DAY, DIDN^T USE ON 09/30/2025
  7. STILNOX TAB 10MG [Concomitant]
     Dosage: IN CASE OF INSOMNIA 0-0-0-1
     Route: 048
  8. FURON TAB 40MG [Concomitant]
     Dosage: 1/2-0-0 (1 TABLET IS 40MG)
     Route: 048
  9. RUMBERALIN TBL 1000MG [Concomitant]
     Dosage: 1-0-0
     Route: 048

REACTIONS (3)
  - Tubulointerstitial nephritis [Recovering/Resolving]
  - Herpes zoster [Unknown]
  - Rash [Unknown]

NARRATIVE: CASE EVENT DATE: 20250901
